FAERS Safety Report 6764655-9 (Version None)
Quarter: 2010Q2

REPORT INFORMATION
  Report Type: 
  Country: None (occurrence: None)
  Receive Date: 20100609
  Receipt Date: 20100413
  Transmission Date: 20101027
  Serious: No
  Sender: FDA-Public Use
  Company Number: 2010008885

PATIENT
  Age: 6 Year
  Sex: Female
  Weight: 28.123 kg

DRUGS (2)
  1. CHILDREN'S ZYRTEC ALLERGY [Suspect]
     Indication: SEASONAL ALLERGY
     Dosage: 5ML 2X A DAY,ORAL
     Route: 048
  2. KETOTIFEN (KETOTIFEN) [Concomitant]

REACTIONS (1)
  - DRUG INEFFECTIVE [None]
